FAERS Safety Report 6065057-3 (Version None)
Quarter: 2009Q1

REPORT INFORMATION
  Report Type: 
  Country: None (occurrence: None)
  Receive Date: 20090203
  Receipt Date: 20090203
  Transmission Date: 20090719
  Serious: Yes (Death)
  Sender: FDA-Public Use
  Company Number: None

PATIENT
  Age: 80 Year
  Sex: Male
  Weight: 63.5036 kg

DRUGS (1)
  1. LISINOPRIL [Suspect]
     Indication: HEART RATE DECREASED
     Dosage: ONE ONCE A DAY PO
     Route: 048
     Dates: start: 20070420, end: 20080809

REACTIONS (3)
  - ANAEMIA [None]
  - BLOOD IRON DECREASED [None]
  - LIVER DISORDER [None]
